FAERS Safety Report 10057694 (Version 1)
Quarter: 2014Q2

REPORT INFORMATION
  Report Type: Spontaneous
  Country: US (occurrence: US)
  Receive Date: 20140404
  Receipt Date: 20140404
  Transmission Date: 20141212
  Serious: No
  Sender: FDA-Public Use
  Company Number: US-BIOGENIDEC-2014BI030460

PATIENT
  Sex: Female
  Weight: 64 kg

DRUGS (6)
  1. AVONEX [Suspect]
     Indication: MULTIPLE SCLEROSIS
     Route: 030
     Dates: start: 19980601, end: 20011101
  2. AVONEX [Suspect]
     Indication: MULTIPLE SCLEROSIS
     Route: 030
     Dates: start: 20120614
  3. AMBIEN [Concomitant]
     Indication: INSOMNIA
  4. XANAX (ALPRAZOLAM) [Concomitant]
     Indication: ANXIETY
  5. XANAX (ALPRAZOLAM) [Concomitant]
     Indication: PANIC ATTACK
  6. NUVIGIL [Concomitant]
     Indication: MULTIPLE SCLEROSIS

REACTIONS (3)
  - Fatigue [Unknown]
  - Insomnia [Unknown]
  - Anxiety [Unknown]
